FAERS Safety Report 4617846-7 (Version None)
Quarter: 2005Q1

REPORT INFORMATION
  Report Type: 
  Country: None (occurrence: None)
  Receive Date: 20050324
  Receipt Date: 20040713
  Transmission Date: 20050727
  Serious: Yes (Other)
  Sender: FDA-Public Use
  Company Number: JP-GLAXOSMITHKLINE-B0339027A

PATIENT
  Age: 3 Year
  Sex: Male
  Weight: 11 kg

DRUGS (36)
  1. ALKERAN [Suspect]
     Dosage: 70MG PER DAY
     Route: 042
     Dates: start: 20030801, end: 20030801
  2. ALKERAN [Suspect]
     Dosage: 35MG PER DAY
     Route: 042
     Dates: start: 20030802, end: 20030802
  3. CARBOPLATIN [Suspect]
     Dosage: 110MG PER DAY
     Route: 042
     Dates: start: 20030731, end: 20030803
  4. VEPESID [Suspect]
     Dosage: 80MG PER DAY
     Route: 042
     Dates: start: 20030731, end: 20030803
  5. GRAN [Concomitant]
     Dates: start: 20030810, end: 20030816
  6. BAKTAR [Concomitant]
     Route: 048
     Dates: start: 20030801, end: 20030806
  7. BAKTAR [Concomitant]
     Route: 048
     Dates: start: 20030827
  8. POLYMYXIN B SULFATE [Concomitant]
     Route: 048
     Dates: start: 20030801, end: 20030806
  9. ZOVIRAX [Concomitant]
     Route: 048
     Dates: start: 20030801, end: 20030805
  10. ZOVIRAX [Concomitant]
     Route: 048
     Dates: start: 20030828, end: 20031023
  11. ZOVIRAX [Concomitant]
     Route: 048
     Dates: start: 20031023
  12. FUNGIZONE [Concomitant]
     Route: 048
     Dates: start: 20030801, end: 20030804
  13. ALLOID G [Concomitant]
     Route: 048
     Dates: start: 20030801, end: 20030806
  14. ALLOID G [Concomitant]
     Route: 048
     Dates: start: 20030904
  15. KYTRIL [Concomitant]
     Route: 042
     Dates: start: 20030801
  16. SOLU-CORTEF [Concomitant]
     Dates: start: 20030801
  17. SOLU-CORTEF [Concomitant]
     Dates: start: 20030805, end: 20030806
  18. CALONAL [Concomitant]
     Route: 048
     Dates: start: 20030803
  19. MODACIN [Concomitant]
     Route: 042
     Dates: start: 20030804, end: 20030808
  20. LASIX [Concomitant]
     Route: 065
     Dates: start: 20030805, end: 20030808
  21. NEO-MINOPHAGEN C [Concomitant]
     Route: 042
     Dates: start: 20030805, end: 20030806
  22. HAPTOGLOBIN [Concomitant]
     Dates: start: 20030805, end: 20030806
  23. ZOVIRAX [Concomitant]
     Route: 042
     Dates: start: 20030806, end: 20030827
  24. MORPHINE HCL ELIXIR [Concomitant]
     Route: 065
     Dates: start: 20030806, end: 20030820
  25. CARBENIN [Concomitant]
     Route: 042
     Dates: start: 20030808, end: 20030822
  26. TAGAMET [Concomitant]
     Dates: start: 20030810, end: 20030901
  27. SEPAMIT [Concomitant]
     Route: 048
     Dates: start: 20030823, end: 20030908
  28. APRESOLINE [Concomitant]
     Dates: start: 20030822, end: 20030823
  29. APRESOLINE [Concomitant]
     Dates: start: 20031020, end: 20031024
  30. DIFLUCAN [Concomitant]
     Route: 042
     Dates: start: 20030805, end: 20030905
  31. PERIACTIN [Concomitant]
     Route: 048
     Dates: start: 20030924, end: 20031001
  32. SEPAMIT [Concomitant]
     Route: 048
     Dates: start: 20031020
  33. LASIX [Concomitant]
     Route: 048
     Dates: start: 20031023
  34. ALDACTONE A [Concomitant]
     Route: 048
     Dates: start: 20031023
  35. RADIOTHERAPY [Concomitant]
  36. BLOOD TRANSFUSION [Concomitant]

REACTIONS (5)
  - HAEMATURIA [None]
  - HYPERTENSION [None]
  - PROTEINURIA [None]
  - RENAL FAILURE ACUTE [None]
  - STOMATITIS [None]
